FAERS Safety Report 11142458 (Version 1)
Quarter: 2015Q2

REPORT INFORMATION
  Report Type: Spontaneous
  Country: CA (occurrence: CA)
  Receive Date: 20150527
  Receipt Date: 20150527
  Transmission Date: 20150821
  Serious: Yes (Disabling)
  Sender: FDA-Public Use
  Company Number: CA-BAYER-2015-091069

PATIENT
  Age: 40 Year
  Sex: Female

DRUGS (2)
  1. VISANNE [Suspect]
     Active Substance: DIENOGEST
     Indication: ENDOMETRIOSIS
     Dosage: UNK
     Route: 048
     Dates: start: 20150209
  2. YASMIN [Suspect]
     Active Substance: DROSPIRENONE\ETHINYL ESTRADIOL
     Dosage: UNK
     Route: 048

REACTIONS (4)
  - Affective disorder [Recovered/Resolved]
  - Negative thoughts [None]
  - Anaemia [None]
  - Menorrhagia [None]

NARRATIVE: CASE EVENT DATE: 20150209
